FAERS Safety Report 5904933-6 (Version None)
Quarter: 2008Q4

REPORT INFORMATION
  Report Type: 
  Country: None (occurrence: None)
  Receive Date: 20081001
  Receipt Date: 20080929
  Transmission Date: 20090506
  Serious: Yes (Hospitalization, Other)
  Sender: FDA-Public Use
  Company Number: FR-BRISTOL-MYERS SQUIBB COMPANY-14352330

PATIENT
  Age: 57 Year
  Sex: Male
  Weight: 76 kg

DRUGS (9)
  1. REYATAZ [Suspect]
     Indication: HIV INFECTION
     Route: 048
     Dates: start: 20070330, end: 20080904
  2. ZERIT [Suspect]
     Dates: start: 19960101, end: 20070401
  3. EPIVER [Suspect]
     Dates: start: 19960101, end: 20070401
  4. INDINIVIR SULFATE [Suspect]
     Dates: start: 19960101, end: 20070401
  5. KIVEXA [Suspect]
     Dates: start: 20070401
  6. NORVIR [Suspect]
     Dates: start: 20070401
  7. EUPRESSYL [Concomitant]
  8. SECTRAL [Concomitant]
     Dosage: TAKEN HALF UNIT
  9. CRESTOR [Concomitant]

REACTIONS (4)
  - LIPODYSTROPHY ACQUIRED [None]
  - NEPHROLITHIASIS [None]
  - PYONEPHROSIS [None]
  - RENAL COLIC [None]
